FAERS Safety Report 7827557-2 (Version None)
Quarter: 2011Q4

REPORT INFORMATION
  Report Type: 
  Country: None (occurrence: None)
  Receive Date: 20111020
  Receipt Date: 20111015
  Transmission Date: 20120403
  Serious: No
  Sender: FDA-Public Use
  Company Number: PHHY2011FR92254

PATIENT
  Sex: Male

DRUGS (2)
  1. LAMISIL [Suspect]
     Indication: FUNGAL INFECTION
     Dosage: 2 DF, QD
     Route: 048
     Dates: start: 20111015
  2. LAMISIL [Suspect]
     Dosage: 3 DF, QD
     Route: 048

REACTIONS (1)
  - INCORRECT DOSE ADMINISTERED [None]
